FAERS Safety Report 5024818-X (Version None)
Quarter: 2006Q2

REPORT INFORMATION
  Report Type: 
  Country: None (occurrence: None)
  Receive Date: 20060607
  Receipt Date: 20060526
  Transmission Date: 20061013
  Serious: Yes (Other)
  Sender: FDA-Public Use
  Company Number: GBWYE619312MAY06

PATIENT
  Age: 41 Year
  Sex: Female

DRUGS (2)
  1. EFFEXOR [Suspect]
     Indication: DEPRESSION
     Dosage: REDUCING DOSE UNSPECIFIED; 75MG
     Route: 048
     Dates: start: 19990101, end: 20060201
  2. EFFEXOR [Suspect]
     Indication: DEPRESSION
     Dosage: REDUCING DOSE UNSPECIFIED; 75MG
     Route: 048
     Dates: start: 20060201, end: 20060502

REACTIONS (11)
  - DECREASED APPETITE [None]
  - DIARRHOEA [None]
  - DIZZINESS [None]
  - DRUG WITHDRAWAL SYNDROME [None]
  - HISTRIONIC PERSONALITY DISORDER [None]
  - LOSS OF LIBIDO [None]
  - MOTION SICKNESS [None]
  - NAUSEA [None]
  - OBSESSIVE THOUGHTS [None]
  - SUICIDAL IDEATION [None]
  - TREMOR [None]
